FAERS Safety Report 5174868-8 (Version None)
Quarter: 2006Q4

REPORT INFORMATION
  Report Type: 
  Country: None (occurrence: None)
  Receive Date: 20061214
  Receipt Date: 20060606
  Transmission Date: 20070319
  Serious: No
  Sender: FDA-Public Use
  Company Number: US-AMGEN-KDL182043

PATIENT
  Sex: Female

DRUGS (2)
  1. ENBREL [Suspect]
     Indication: RHEUMATOID ARTHRITIS
     Route: 058
     Dates: start: 20030701
  2. METHOTREXATE [Concomitant]
     Dates: start: 20030101

REACTIONS (6)
  - ABDOMINAL DISTENSION [None]
  - BREAST ENLARGEMENT [None]
  - FLATULENCE [None]
  - HYPERHIDROSIS [None]
  - POLLAKIURIA [None]
  - WEIGHT INCREASED [None]
